FAERS Safety Report 8472805-1 (Version None)
Quarter: 2012Q2

REPORT INFORMATION
  Report Type: 
  Country: None (occurrence: None)
  Receive Date: 20120627
  Receipt Date: 20120621
  Transmission Date: 20120825
  Serious: No
  Sender: FDA-Public Use
  Company Number: US-PFIZER INC-2012150082

PATIENT

DRUGS (6)
  1. BACTRIM [Suspect]
     Dosage: UNK
  2. BETADINE [Suspect]
     Dosage: UNK
  3. DOXYCYCLINE HYCLATE [Suspect]
     Dosage: UNK
  4. E-MYCIN [Suspect]
     Dosage: UNK
  5. POTASSIUM PENICILLIN G [Suspect]
     Dosage: UNK
  6. DEMEROL [Suspect]
     Dosage: UNK

REACTIONS (1)
  - DRUG HYPERSENSITIVITY [None]
